FAERS Safety Report 15608648 (Version 2)
Quarter: 2018Q4

REPORT INFORMATION
  Report Type: Spontaneous
  Country: CN (occurrence: CN)
  Receive Date: 20181112
  Receipt Date: 20181130
  Transmission Date: 20190205
  Serious: Yes (Hospitalization, Other)
  Sender: FDA-Public Use
  Company Number: CN-ELI_LILLY_AND_COMPANY-CN201811000544

PATIENT
  Age: 67 Year
  Sex: Male
  Weight: 70 kg

DRUGS (3)
  1. HUMULIN 70/30 [Suspect]
     Active Substance: INSULIN HUMAN
     Dosage: 25 U, BID
     Route: 058
  2. METFORMIN [Concomitant]
     Active Substance: METFORMIN HYDROCHLORIDE
     Indication: DIABETES MELLITUS
     Dosage: UNK, DAILY
     Route: 048
  3. HUMULIN 70/30 [Suspect]
     Active Substance: INSULIN HUMAN
     Indication: DIABETES MELLITUS
     Dosage: 23 U, BID
     Route: 058

REACTIONS (7)
  - Blood glucose decreased [Unknown]
  - Blood glucose increased [Unknown]
  - Cerebral haemorrhage [Unknown]
  - Eye disorder [Unknown]
  - Deafness [Unknown]
  - Hypertension [Unknown]
  - Anger [Unknown]

NARRATIVE: CASE EVENT DATE: 2002
